FAERS Safety Report 5093613-8 (Version None)
Quarter: 2006Q3

REPORT INFORMATION
  Report Type: 
  Country: None (occurrence: None)
  Receive Date: 20060829
  Receipt Date: 20060811
  Transmission Date: 20061208
  Serious: Yes (Death, Hospitalization)
  Sender: FDA-Public Use
  Company Number: M-06-0696

PATIENT
  Sex: Female

DRUGS (2)
  1. AMIODARONE HCL [Suspect]
     Indication: CARDIAC DISORDER
     Dosage: 200 MG, QD, PO
     Route: 048
     Dates: start: 20050309, end: 20050312
  2. LANOXIN [Concomitant]

REACTIONS (14)
  - ASTHENIA [None]
  - CARDIAC FAILURE [None]
  - DIALYSIS [None]
  - DIARRHOEA [None]
  - DUODENAL ULCER HAEMORRHAGE [None]
  - FEELING ABNORMAL [None]
  - GENERAL PHYSICAL HEALTH DETERIORATION [None]
  - HEPATIC FAILURE [None]
  - LIVER TRANSPLANT [None]
  - MALAISE [None]
  - RENAL FAILURE [None]
  - SURGICAL PROCEDURE REPEATED [None]
  - TRANSPLANT FAILURE [None]
  - VOMITING [None]
